FAERS Safety Report 12241098 (Version 1)
Quarter: 2016Q2

REPORT INFORMATION
  Report Type: Other
  Country: CN (occurrence: CN)
  Receive Date: 20160406
  Receipt Date: 20160406
  Transmission Date: 20160815
  Serious: Yes (Hospitalization)
  Sender: FDA-Public Use
  Company Number: CN-LUPIN PHARMACEUTICALS INC.-2016-01312

PATIENT
  Age: 61 Year
  Sex: Male

DRUGS (1)
  1. DICLOFENAC [Suspect]
     Active Substance: DICLOFENAC
     Indication: NEURODEGENERATIVE DISORDER
     Route: 065

REACTIONS (3)
  - Gastric ulcer [Unknown]
  - Gastrointestinal disorder [Unknown]
  - Drug abuse [Unknown]
